FAERS Safety Report 6631652-3 (Version None)
Quarter: 2010Q1

REPORT INFORMATION
  Report Type: 
  Country: None (occurrence: None)
  Receive Date: 20100312
  Receipt Date: 20100309
  Transmission Date: 20100710
  Serious: Yes (Hospitalization)
  Sender: FDA-Public Use
  Company Number: GB-B.I. PHARMACEUTICALS,INC./RIDGEFIELD-2010-UK-00236UK

PATIENT
  Age: 82 Year
  Sex: Male

DRUGS (1)
  1. TIOTROPIUM RESPIMAT [Suspect]
     Indication: CHRONIC OBSTRUCTIVE PULMONARY DISEASE
     Dosage: 18 MCG

REACTIONS (1)
  - CHRONIC OBSTRUCTIVE PULMONARY DISEASE [None]
